FAERS Safety Report 6018942-2 (Version None)
Quarter: 2008Q4

REPORT INFORMATION
  Report Type: 
  Country: None (occurrence: None)
  Receive Date: 20081224
  Receipt Date: 20081215
  Transmission Date: 20090506
  Serious: Yes (Death)
  Sender: FDA-Public Use
  Company Number: US-PFIZER INC-2008153654

PATIENT
  Age: 40 Year
  Sex: Male

DRUGS (6)
  1. VERAPAMIL HCL [Suspect]
     Route: 048
  2. POTASSIUM CANRENOATE AND POTASSIUM CHLORIDE AND POTASSIUM CITRATE [Suspect]
  3. FENTANYL CITRATE [Suspect]
  4. COCAINE [Suspect]
  5. ETHANOL [Suspect]
  6. ACETAMINOPHEN AND HYDROCODONE BITARTRATE [Suspect]

REACTIONS (3)
  - CARDIAC ARREST [None]
  - COMPLETED SUICIDE [None]
  - RESPIRATORY ARREST [None]
